FAERS Safety Report 18387314 (Version 2)
Quarter: 2020Q4

REPORT INFORMATION
  Report Type: Spontaneous
  Country: US (occurrence: US)
  Receive Date: 20201015
  Receipt Date: 20201026
  Transmission Date: 20210114
  Serious: Yes (Hospitalization)
  Sender: FDA-Public Use
  Company Number: US-PFIZER INC-2020396649

PATIENT
  Age: 79 Year
  Sex: Female
  Weight: 54.43 kg

DRUGS (3)
  1. LACTOBACILLUS PLANTARUM [Suspect]
     Active Substance: LACTOBACILLUS PLANTARUM
     Dosage: UNK
  2. VIBURNUM SPP. [HERBALS] [Suspect]
     Active Substance: HERBALS
     Dosage: UNK
  3. VANCOMYCIN HCL [Suspect]
     Active Substance: VANCOMYCIN HYDROCHLORIDE
     Indication: CLOSTRIDIUM DIFFICILE INFECTION
     Dosage: UNK
     Dates: start: 202007

REACTIONS (1)
  - Drug ineffective [Not Recovered/Not Resolved]
